FAERS Safety Report 6596804-X (Version None)
Quarter: 2010Q1

REPORT INFORMATION
  Report Type: 
  Country: None (occurrence: None)
  Receive Date: 20100219
  Receipt Date: 20100219
  Transmission Date: 20100710
  Serious: Yes (Hospitalization)
  Sender: FDA-Public Use
  Company Number: None

PATIENT
  Age: 37 Year
  Sex: Female
  Weight: 66.2 kg

DRUGS (2)
  1. MODAFINIL 100MG DAILY PO [Suspect]
     Dosage: MODAFINIL 100MG DAILY PO
     Route: 048
     Dates: start: 20100112, end: 20100115
  2. MODAFINIL 200MG DAILY PO [Suspect]
     Dosage: MOFAFINIL 200MG DAILY PO
     Route: 048
     Dates: start: 20100115, end: 20100122

REACTIONS (3)
  - HEPATITIS [None]
  - RESPIRATORY RATE INCREASED [None]
  - TACHYCARDIA [None]
